FAERS Safety Report 8934582 (Version 1)
Quarter: 2012Q4

REPORT INFORMATION
  Report Type: 
  Country: US (occurrence: US)
  Receive Date: 20121129
  Receipt Date: 20121129
  Transmission Date: 20130627
  Serious: Yes (Congenital Anomaly, Other)
  Sender: FDA-Public Use
  Company Number: US-PFIZER INC-2012297398

PATIENT
  Sex: Female
  Weight: 1.6 kg

DRUGS (4)
  1. ZOLOFT [Suspect]
     Dosage: 100 mg, UNK
     Route: 064
     Dates: start: 20020707
  2. WELLBUTRIN [Concomitant]
     Dosage: UNK
     Route: 064
     Dates: start: 20020722
  3. PRENATAL VITAMINS [Concomitant]
     Dosage: UNK
     Route: 064
     Dates: start: 20021024
  4. KLONOPIN [Concomitant]
     Dosage: 4 mg, UNK
     Route: 064
     Dates: start: 20021024

REACTIONS (6)
  - Maternal exposure timing unspecified [Unknown]
  - Ventricular septal defect [Recovered/Resolved]
  - Atrial septal defect [Unknown]
  - Tricuspid valve incompetence [Unknown]
  - Cardiac valve disease [Unknown]
  - Premature baby [Unknown]
